FAERS Safety Report 5571412-8 (Version None)
Quarter: 2007Q4

REPORT INFORMATION
  Report Type: 
  Country: None (occurrence: None)
  Receive Date: 20071221
  Receipt Date: 20071022
  Transmission Date: 20080405
  Serious: No
  Sender: FDA-Public Use
  Company Number: A0689641A

PATIENT
  Age: 53 Year
  Sex: Female

DRUGS (19)
  1. FLONASE [Suspect]
     Route: 045
  2. VITAMINS [Concomitant]
  3. PRILOSEC [Concomitant]
  4. FIBER [Concomitant]
  5. LASIX [Concomitant]
  6. ADVAIR DISKUS 100/50 [Concomitant]
  7. MUCINEX [Concomitant]
  8. COUMADIN [Concomitant]
  9. MISOPROSTOL [Concomitant]
  10. ALTACE [Concomitant]
  11. TYLENOL [Concomitant]
  12. BENZONATATE [Concomitant]
  13. LIPITOR [Concomitant]
  14. FLUOXETINE [Concomitant]
  15. IRON [Concomitant]
  16. ASPIRIN [Concomitant]
  17. ALBUTEROL [Concomitant]
  18. LEVEMIR [Concomitant]
  19. DOCUSATE [Concomitant]

REACTIONS (2)
  - EPISTAXIS [None]
  - HEADACHE [None]
